FAERS Safety Report 23866828 (Version 2)
Quarter: 2024Q3

REPORT INFORMATION
  Report Type: Spontaneous
  Country: US (occurrence: US)
  Receive Date: 20240517
  Receipt Date: 20240912
  Transmission Date: 20241017
  Serious: No
  Sender: Harrow Health
  Company Number: US-IMP-2024000241

PATIENT
  Age: 65 Year
  Sex: Female

DRUGS (2)
  1. VEVYE [Suspect]
     Active Substance: CYCLOSPORINE
     Indication: Dry eye
     Route: 047
     Dates: start: 202408
  2. VEVYE [Suspect]
     Active Substance: CYCLOSPORINE
     Indication: Dry eye
     Dosage: TWO TIMES PER DAY, USUALLY AT NOON AND MIDNIGHT BEFORE BED
     Route: 047
     Dates: start: 202403

REACTIONS (1)
  - Drug ineffective [Unknown]
